FAERS Safety Report 21605474 (Version 1)
Quarter: 2022Q4

REPORT INFORMATION
  Report Type: Spontaneous
  Country: US (occurrence: US)
  Receive Date: 20221116
  Receipt Date: 20221116
  Transmission Date: 20230113
  Serious: Yes (Death, Hospitalization)
  Sender: FDA-Public Use
  Company Number: US-PFIZER INC-202201303355

PATIENT
  Age: 69 Year
  Sex: Male
  Weight: 75.3 kg

DRUGS (2)
  1. BRAFTOVI [Suspect]
     Active Substance: ENCORAFENIB
     Dosage: 450 MG, 1X/DAY (TOOK 6 CAPSULES ONCE A DAY)
     Dates: start: 202207
  2. MEKTOVI [Suspect]
     Active Substance: BINIMETINIB
     Dosage: 45 MG, 2X/DAY (TAKES 3 TABLETS BY MOUTH TWICE A DAY WITH OR WITHOUT FOOD)
     Route: 048
     Dates: start: 202207

REACTIONS (5)
  - Second primary malignancy [Fatal]
  - Prostate cancer [Fatal]
  - General physical health deterioration [Unknown]
  - Asthenia [Unknown]
  - Fatigue [Unknown]
